FAERS Safety Report 17815729 (Version 2)
Quarter: 2020Q3

REPORT INFORMATION
  Report Type: Other
  Country: IN (occurrence: IN)
  Receive Date: 20200522
  Receipt Date: 20200821
  Transmission Date: 20201102
  Serious: Yes (Other)
  Sender: FDA-Public Use
  Company Number: IN-ROCHE-2596606

PATIENT
  Sex: Female

DRUGS (1)
  1. TECENTRIQ [Suspect]
     Active Substance: ATEZOLIZUMAB
     Indication: TRIPLE NEGATIVE BREAST CANCER
     Route: 042
     Dates: start: 20200424

REACTIONS (6)
  - Intentional product use issue [Unknown]
  - Weight decreased [Unknown]
  - Metastasis [Unknown]
  - Off label use [Unknown]
  - Platelet count decreased [Unknown]
  - Pyrexia [Unknown]
